FAERS Safety Report 4521577-1 (Version None)
Quarter: 2004Q4

REPORT INFORMATION
  Report Type: 
  Country: None (occurrence: None)
  Receive Date: 20041208
  Receipt Date: 20041208
  Transmission Date: 20050328
  Serious: Yes (Life-Threatening, Disabling, Other)
  Sender: FDA-Public Use
  Company Number: None

PATIENT
  Age: 44 Year
  Sex: Female
  Weight: 63.5036 kg

DRUGS (1)
  1. ZOLOFT [Suspect]
     Indication: PANIC ATTACK
     Dates: start: 20041130, end: 20041201

REACTIONS (15)
  - AGITATION [None]
  - ANOREXIA [None]
  - BALANCE DISORDER [None]
  - DIZZINESS [None]
  - IMPAIRED WORK ABILITY [None]
  - INSOMNIA [None]
  - LETHARGY [None]
  - MALAISE [None]
  - MUSCLE TWITCHING [None]
  - OBSESSIVE THOUGHTS [None]
  - PSYCHOMOTOR HYPERACTIVITY [None]
  - SUICIDAL IDEATION [None]
  - THINKING ABNORMAL [None]
  - TREMOR [None]
  - VOMITING [None]
